FAERS Safety Report 6490061-0 (Version None)
Quarter: 2009Q4

REPORT INFORMATION
  Report Type: 
  Country: None (occurrence: None)
  Receive Date: 20091211
  Receipt Date: 20090119
  Transmission Date: 20100525
  Serious: No
  Sender: FDA-Public Use
  Company Number: A0756866A

PATIENT
  Age: 56 Year
  Sex: Male
  Weight: 127.7 kg

DRUGS (1)
  1. FLUTICASONE PROPIONATE [Suspect]
     Indication: POSTNASAL DRIP

REACTIONS (3)
  - DRUG INEFFECTIVE [None]
  - PRODUCT QUALITY ISSUE [None]
  - THERAPEUTIC RESPONSE DECREASED [None]
